FAERS Safety Report 6118555-8 (Version None)
Quarter: 2009Q1

REPORT INFORMATION
  Report Type: 
  Country: None (occurrence: None)
  Receive Date: 20090314
  Receipt Date: 20090218
  Transmission Date: 20090719
  Serious: No
  Sender: FDA-Public Use
  Company Number: US-ABBOTT-09P-163-0558486-00

PATIENT
  Sex: Female
  Weight: 122.58 kg

DRUGS (4)
  1. HUMIRA [Suspect]
     Indication: RHEUMATOID ARTHRITIS
  2. HUMIRA [Suspect]
     Dates: start: 20090218
  3. BLOOD PRESSURE MED [Concomitant]
     Indication: DRUG USE FOR UNKNOWN INDICATION
  4. DECLINED LIST [Concomitant]
     Indication: DRUG USE FOR UNKNOWN INDICATION

REACTIONS (3)
  - BONE PAIN [None]
  - PHARYNGITIS [None]
  - PYREXIA [None]
